FAERS Safety Report 11493052 (Version 1)
Quarter: 2015Q3

REPORT INFORMATION
  Report Type: Spontaneous
  Country: US (occurrence: None)
  Receive Date: 20150910
  Receipt Date: 20150910
  Transmission Date: 20151125
  Serious: Yes (Other)
  Sender: FDA-Public Use
  Company Number: None

PATIENT
  Age: 46 Year
  Sex: Male
  Weight: 85.28 kg

DRUGS (2)
  1. DIVALPROEX - ER 500 MG AUROBINDO [Suspect]
     Active Substance: DIVALPROEX SODIUM
     Indication: DEPRESSION
     Dosage: 2 - 500MG  3 YEARS 4 MONTHS
  2. TESTOSTERONE. [Concomitant]
     Active Substance: TESTOSTERONE

REACTIONS (7)
  - Sensory disturbance [None]
  - Product quality issue [None]
  - Memory impairment [None]
  - Drug ineffective [None]
  - Depression [None]
  - Anxiety [None]
  - Feeling abnormal [None]

NARRATIVE: CASE EVENT DATE: 20150909
